FAERS Safety Report 15327715 (Version 2)
Quarter: 2018Q3

REPORT INFORMATION
  Report Type: Spontaneous
  Country: BR (occurrence: BR)
  Receive Date: 20180828
  Receipt Date: 20180911
  Transmission Date: 20181010
  Serious: Yes (Hospitalization, Other)
  Sender: FDA-Public Use
  Company Number: BR-009507513-1808BRA011208

PATIENT
  Age: 78 Year
  Sex: Female
  Weight: 54 kg

DRUGS (8)
  1. JANUVIA [Suspect]
     Active Substance: SITAGLIPTIN PHOSPHATE
     Indication: TYPE 2 DIABETES MELLITUS
     Dosage: 100 MG, UNK
     Route: 048
     Dates: start: 2014
  2. TRAMAL [Concomitant]
     Active Substance: TRAMADOL
     Indication: PAIN
     Dosage: 100MG IN THE MORNING
  3. SPIRONOLACTONE. [Concomitant]
     Active Substance: SPIRONOLACTONE
     Dosage: 25 MG, 1 TABLET DAILY
     Route: 048
  4. PRADAXA [Concomitant]
     Active Substance: DABIGATRAN ETEXILATE MESYLATE
     Indication: ANTICOAGULANT THERAPY
     Dosage: 110 MG, 1 TABLET IN THE MORNING AND 1 TABLET IN THE EVENING
     Route: 048
  5. TRAMAL [Concomitant]
     Active Substance: TRAMADOL
     Dosage: 50MG AT NIGHT
  6. LASIX [Concomitant]
     Active Substance: FUROSEMIDE
     Dosage: 40 MG, 1 TABLET DAILY
     Route: 048
  7. DIGOXIN. [Concomitant]
     Active Substance: DIGOXIN
     Dosage: 25 MG, ONE?QUARTER TABLET PER DAY
     Route: 048
  8. AMIODARONE [Concomitant]
     Active Substance: AMIODARONE
     Dosage: 200 MG, 1 TABLET DAILY
     Route: 048

REACTIONS (14)
  - Mitral valve disease [Unknown]
  - Limb injury [Recovering/Resolving]
  - Eye disorder [Not Recovered/Not Resolved]
  - Fall [Recovering/Resolving]
  - Therapeutic response unexpected [Unknown]
  - Arrhythmia [Unknown]
  - Fatigue [Unknown]
  - Back pain [Unknown]
  - Retinal disorder [Not Recovered/Not Resolved]
  - Bone prosthesis insertion [Unknown]
  - Face injury [Recovering/Resolving]
  - Dyspnoea [Unknown]
  - Dry mouth [Unknown]
  - Adverse event [Unknown]

NARRATIVE: CASE EVENT DATE: 2015
